FAERS Safety Report 7386672-0 (Version None)
Quarter: 2011Q1

REPORT INFORMATION
  Report Type: 
  Country: None (occurrence: None)
  Receive Date: 20110331
  Receipt Date: 20110322
  Transmission Date: 20110831
  Serious: Yes (Death, Hospitalization)
  Sender: FDA-Public Use
  Company Number: A0894269A

PATIENT
  Age: 69 Year
  Sex: Female

DRUGS (1)
  1. ARZERRA [Suspect]
     Route: 065
     Dates: start: 20100617, end: 20100701

REACTIONS (25)
  - CHRONIC LYMPHOCYTIC LEUKAEMIA [None]
  - PNEUMONIA [None]
  - HEPATITIS B [None]
  - BLOOD BILIRUBIN INCREASED [None]
  - DYSPNOEA [None]
  - HEPATIC FAILURE [None]
  - RENAL FAILURE [None]
  - HEPATORENAL SYNDROME [None]
  - DELIRIUM [None]
  - THROMBOCYTOPENIA [None]
  - FLUID RETENTION [None]
  - ENTEROCOCCAL SEPSIS [None]
  - PYREXIA [None]
  - COAGULOPATHY [None]
  - ASCITES [None]
  - GENERAL PHYSICAL HEALTH DETERIORATION [None]
  - HEPATOMEGALY [None]
  - COUGH [None]
  - ANAEMIA [None]
  - PORTAL VEIN THROMBOSIS [None]
  - ENCEPHALOPATHY [None]
  - HEPATIC NEOPLASM [None]
  - HEPATIC ENZYME INCREASED [None]
  - COMA HEPATIC [None]
  - ESCHERICHIA SEPSIS [None]
